FAERS Safety Report 5749706-2 (Version None)
Quarter: 2008Q2

REPORT INFORMATION
  Report Type: 
  Country: None (occurrence: None)
  Receive Date: 20080527
  Receipt Date: 20080522
  Transmission Date: 20081010
  Serious: Yes (Life-Threatening)
  Sender: FDA-Public Use
  Company Number: CN-ASTRAZENECA-2008AP03909

PATIENT
  Age: 32 Year
  Sex: Female

DRUGS (1)
  1. QUETIAPINE FUMARATE [Suspect]
     Indication: SCHIZOPHRENIA
     Dosage: PATIENT TOOK 150 TABLETS
     Route: 048
     Dates: start: 20060207, end: 20060207

REACTIONS (6)
  - ACIDOSIS [None]
  - BLOOD PRESSURE DECREASED [None]
  - COMA [None]
  - HYPOKALAEMIA [None]
  - OVERDOSE [None]
  - RESPIRATORY FAILURE [None]
